FAERS Safety Report 22973902 (Version 3)
Quarter: 2024Q1

REPORT INFORMATION
  Report Type: Spontaneous
  Country: US (occurrence: US)
  Receive Date: 20230922
  Receipt Date: 20240320
  Transmission Date: 20240410
  Serious: No
  Sender: FDA-Public Use
  Company Number: US-Blueprint Medicines Corporation-SP-US-2023-001424

PATIENT
  Sex: Female

DRUGS (4)
  1. AYVAKIT [Suspect]
     Active Substance: AVAPRITINIB
     Indication: Advanced systemic mastocytosis
     Route: 065
     Dates: start: 20230726
  2. AYVAKIT [Suspect]
     Active Substance: AVAPRITINIB
     Indication: Systemic mastocytosis
     Route: 048
  3. AYVAKIT [Suspect]
     Active Substance: AVAPRITINIB
     Route: 065
     Dates: start: 20230726
  4. VITAMINS [Concomitant]
     Active Substance: VITAMINS
     Indication: Product used for unknown indication
     Route: 065

REACTIONS (10)
  - Fall [Unknown]
  - Balance disorder [Unknown]
  - Bradykinesia [Unknown]
  - Aphasia [Unknown]
  - Fatigue [Unknown]
  - Insomnia [Unknown]
  - Confusional state [Unknown]
  - Frustration tolerance decreased [Unknown]
  - Emotional disorder [Unknown]
  - Attention deficit hyperactivity disorder [Unknown]
